FAERS Safety Report 5380754-0 (Version None)
Quarter: 2007Q3

REPORT INFORMATION
  Report Type: 
  Country: None (occurrence: None)
  Receive Date: 20070706
  Receipt Date: 20070629
  Transmission Date: 20080115
  Serious: Yes (Hospitalization)
  Sender: FDA-Public Use
  Company Number: A0661032A

PATIENT
  Age: 41 Year
  Sex: Male

DRUGS (9)
  1. COREG [Suspect]
     Dosage: 3.125MG PER DAY
     Route: 048
     Dates: start: 20060301, end: 20070601
  2. AVANDIA [Concomitant]
  3. COUMADIN [Concomitant]
  4. VASOTEC [Concomitant]
  5. GLUCOPHAGE [Concomitant]
  6. NEURONTIN [Concomitant]
  7. LASIX [Concomitant]
  8. VICODIN [Concomitant]
  9. ENALAPRIL [Concomitant]

REACTIONS (6)
  - ANAL FISSURE EXCISION [None]
  - CARDIAC FAILURE [None]
  - DRUG INEFFECTIVE [None]
  - HEADACHE [None]
  - HERNIA [None]
  - THROMBOSIS [None]
